FAERS Safety Report 7069922-X (Version None)
Quarter: 2010Q4

REPORT INFORMATION
  Report Type: 
  Country: None (occurrence: None)
  Receive Date: 20101028
  Receipt Date: 20100701
  Transmission Date: 20110411
  Serious: No
  Sender: FDA-Public Use
  Company Number: US-WYE-H16252110

PATIENT
  Sex: Male

DRUGS (1)
  1. ADVIL [Suspect]
     Indication: NECK PAIN
     Dosage: TWO 2-CT BLISTERS

REACTIONS (2)
  - ERYTHEMA [None]
  - RASH MACULAR [None]
